FAERS Safety Report 20013095 (Version 1)
Quarter: 2021Q4

REPORT INFORMATION
  Report Type: Spontaneous
  Country: US (occurrence: US)
  Receive Date: 20211029
  Receipt Date: 20211029
  Transmission Date: 20220303
  Serious: Yes (Other)
  Sender: FDA-Public Use
  Company Number: US-SA-SAC20211027001703

PATIENT
  Age: 18 Year
  Sex: Female

DRUGS (1)
  1. ZANTAC [Suspect]
     Active Substance: RANITIDINE HYDROCHLORIDE
     Indication: Dyspepsia
     Dosage: 150 MG: OCCASIONAL
     Dates: start: 198401, end: 201601

REACTIONS (3)
  - Thyroid cancer [Unknown]
  - Hodgkin^s disease [Unknown]
  - Uterine cancer [Unknown]

NARRATIVE: CASE EVENT DATE: 19880101
